FAERS Safety Report 9713983 (Version 2)
Quarter: 2015Q3

REPORT INFORMATION
  Report Type: Spontaneous
  Country: US (occurrence: US)
  Receive Date: 20131126
  Receipt Date: 20150803
  Transmission Date: 20151125
  Serious: No
  Sender: FDA-Public Use
  Company Number: US-GILEAD-2008-0018412

PATIENT
  Age: 78 Year
  Sex: Female
  Weight: 86.18 kg

DRUGS (10)
  1. DITROPAN [Concomitant]
     Active Substance: OXYBUTYNIN CHLORIDE
  2. GABAPENTIN. [Concomitant]
     Active Substance: GABAPENTIN
  3. ASA LOW DOSE [Concomitant]
  4. LODINE [Concomitant]
     Active Substance: ETODOLAC
  5. REVATIO [Concomitant]
     Active Substance: SILDENAFIL CITRATE
  6. BONIVA [Concomitant]
     Active Substance: IBANDRONATE SODIUM
  7. CALCIUM [Concomitant]
     Active Substance: CALCIUM
  8. LETAIRIS [Suspect]
     Active Substance: AMBRISENTAN
     Indication: PULMONARY ARTERIAL HYPERTENSION
     Route: 048
     Dates: start: 20080912, end: 20080915
  9. ATENOLOL. [Concomitant]
     Active Substance: ATENOLOL
  10. LISINOPRIL. [Concomitant]
     Active Substance: LISINOPRIL

REACTIONS (3)
  - Headache [None]
  - Flushing [None]
  - Asthenia [None]

NARRATIVE: CASE EVENT DATE: 20080912
